FAERS Safety Report 9170554 (Version 2)
Quarter: 2013Q1

REPORT INFORMATION
  Report Type: Spontaneous
  Country: US (occurrence: None)
  Receive Date: 20130307
  Receipt Date: 20130318
  Transmission Date: 20140127
  Serious: Yes (Other)
  Sender: FDA-Public Use
  Company Number: AUR-APL-2013-01836

PATIENT
  Age: 57 Year
  Sex: Female

DRUGS (2)
  1. CIPROFLOXACIN [Suspect]
     Indication: URINARY TRACT INFECTION
  2. CONTRAST MEDIA [Suspect]
     Indication: ARTERIOGRAM CORONARY

REACTIONS (2)
  - Red man syndrome [None]
  - Drug interaction [None]
